FAERS Safety Report 24592839 (Version 2)
Quarter: 2024Q4

REPORT INFORMATION
  Report Type: Spontaneous
  Country: JP (occurrence: JP)
  Receive Date: 20241108
  Receipt Date: 20241126
  Transmission Date: 20250115
  Serious: No
  Sender: ASTELLAS
  Company Number: JP-ASTELLAS-2024-AER-014079

PATIENT
  Age: 8 Decade
  Sex: Female

DRUGS (1)
  1. XOSPATA [Suspect]
     Active Substance: GILTERITINIB
     Indication: Acute myeloid leukaemia recurrent
     Route: 048
     Dates: start: 20241015

REACTIONS (2)
  - Platelet count decreased [Unknown]
  - Neutrophil count decreased [Unknown]
